FAERS Safety Report 4895744-1 (Version None)
Quarter: 2005Q4

REPORT INFORMATION
  Report Type: 
  Country: None (occurrence: None)
  Receive Date: 20051223
  Receipt Date: 20051122
  Transmission Date: 20060501
  Serious: No
  Sender: FDA-Public Use
  Company Number: 216502

PATIENT
  Sex: Male

DRUGS (9)
  1. AVASTIN [Suspect]
     Indication: NON-SMALL CELL LUNG CANCER
     Dates: start: 20050701
  2. TARCEVA [Suspect]
     Indication: NON-SMALL CELL LUNG CANCER
     Dosage: 150 MG, QD, ORAL
     Route: 048
     Dates: start: 20050701
  3. HCTZ (HYDROCHLOROTHIAZIDE) [Concomitant]
  4. VICODIN (HYDROCODONE BITARTRATE, ACETAMINOPHEN) [Concomitant]
  5. ZOFRAN [Concomitant]
  6. VANCOMYCIN HYDROCHLORIDE [Concomitant]
  7. COMPAZINE [Concomitant]
  8. EMEND [Concomitant]
  9. MOTRIN [Concomitant]

REACTIONS (1)
  - RASH [None]
